FAERS Safety Report 5950237-5 (Version None)
Quarter: 2008Q4

REPORT INFORMATION
  Report Type: 
  Country: None (occurrence: None)
  Receive Date: 20081112
  Receipt Date: 20081105
  Transmission Date: 20090506
  Serious: Yes (Death, Hospitalization)
  Sender: FDA-Public Use
  Company Number: FR-ABBOTT-08P-056-0460426-00

PATIENT
  Sex: Male

DRUGS (10)
  1. ODRIK [Suspect]
     Indication: DRUG USE FOR UNKNOWN INDICATION
     Route: 048
     Dates: start: 20080309, end: 20080526
  2. IODIXANOL [Interacting]
     Indication: ARTERIOGRAM CORONARY
     Route: 042
     Dates: start: 20080522, end: 20080522
  3. FUROSEMIDE [Interacting]
     Indication: DRUG USE FOR UNKNOWN INDICATION
     Route: 048
     Dates: start: 20080309, end: 20080526
  4. FUROSEMIDE [Interacting]
     Route: 048
     Dates: start: 20080529, end: 20080601
  5. FLUINDIONE [Concomitant]
     Indication: DRUG USE FOR UNKNOWN INDICATION
  6. CLOPIDOGREL [Concomitant]
     Indication: DRUG USE FOR UNKNOWN INDICATION
  7. VERAPAMIL [Concomitant]
     Indication: DRUG USE FOR UNKNOWN INDICATION
  8. ESOMEPRAZOLE MAGNESIUM [Concomitant]
     Indication: DRUG USE FOR UNKNOWN INDICATION
  9. INSULIN PORCINE [Concomitant]
     Indication: DRUG USE FOR UNKNOWN INDICATION
  10. ATORVASTATIN CALCIUM [Concomitant]
     Indication: DRUG USE FOR UNKNOWN INDICATION

REACTIONS (2)
  - RENAL FAILURE ACUTE [None]
  - SEPSIS [None]
